FAERS Safety Report 5878978-9 (Version None)
Quarter: 2008Q3

REPORT INFORMATION
  Report Type: 
  Country: None (occurrence: None)
  Receive Date: 20080911
  Receipt Date: 20080911
  Transmission Date: 20090109
  Serious: No
  Sender: FDA-Public Use
  Company Number: None

PATIENT
  Age: 68 Year
  Sex: Female
  Weight: 59 kg

DRUGS (16)
  1. FLEBOGAMMA [Suspect]
     Indication: CHRONIC LYMPHOCYTIC LEUKAEMIA
     Dosage: 60GRAMS IV X 1
     Dates: start: 20080909
  2. FLEBOGAMMA [Suspect]
  3. BACTRIM DS [Concomitant]
  4. CHRONULAR [Concomitant]
  5. MORPHINE [Concomitant]
  6. CORTEF [Concomitant]
  7. ZOVIRAX [Concomitant]
  8. SYNTHROID [Concomitant]
  9. TESSALON [Concomitant]
  10. CLARITIN [Concomitant]
  11. COMBIVENT [Concomitant]
  12. GUAIFENESIN [Concomitant]
  13. ZITHROMAX [Concomitant]
  14. SPIRIVA [Concomitant]
  15. PROGRAF [Concomitant]
  16. DIFLUCAN [Concomitant]

REACTIONS (3)
  - BLOOD PRESSURE INCREASED [None]
  - CHEST PAIN [None]
  - DYSPNOEA [None]
